FAERS Safety Report 10578281 (Version 2)
Quarter: 2014Q4

REPORT INFORMATION
  Report Type: Spontaneous
  Country: FR (occurrence: FR)
  Receive Date: 20141112
  Receipt Date: 20141118
  Transmission Date: 20150529
  Serious: Yes (Other)
  Sender: FDA-Public Use
  Company Number: FR-009507513-1411FRA004272

PATIENT
  Age: 46 Year
  Sex: Male

DRUGS (5)
  1. PAROXETINE [Suspect]
     Active Substance: PAROXETINE\PAROXETINE HYDROCHLORIDE
     Indication: DEPRESSION
     Dosage: 20 MG, QD
     Route: 048
     Dates: start: 20130208
  2. ZOLPIDEM TARTRATE. [Suspect]
     Active Substance: ZOLPIDEM TARTRATE
     Indication: DEPRESSION
     Dosage: UNK, QD
     Route: 048
     Dates: start: 2011, end: 201308
  3. SERESTA [Suspect]
     Active Substance: OXAZEPAM
     Indication: DEPRESSION
     Dosage: QD
     Route: 048
     Dates: start: 2011, end: 201306
  4. NORSET [Suspect]
     Active Substance: MIRTAZAPINE
     Indication: DEPRESSION
     Dosage: QD ,STRENGTH 1 DF
     Route: 048
     Dates: start: 20130405, end: 20130417
  5. PAROXETINE [Suspect]
     Active Substance: PAROXETINE\PAROXETINE HYDROCHLORIDE
     Dosage: 10 MG, QD
     Route: 048
     Dates: start: 20140327, end: 20140405

REACTIONS (8)
  - Homicide [Unknown]
  - Irritability [Unknown]
  - Amnesia [Unknown]
  - Hot flush [Unknown]
  - Dry mouth [Unknown]
  - Insomnia [Unknown]
  - Ejaculation delayed [Unknown]
  - Suicidal ideation [Unknown]

NARRATIVE: CASE EVENT DATE: 20130320
